FAERS Safety Report 21768577 (Version 1)
Quarter: 2022Q4

REPORT INFORMATION
  Report Type: Report from Study
  Country: US (occurrence: US)
  Receive Date: 20221222
  Receipt Date: 20221222
  Transmission Date: 20230113
  Serious: No
  Sender: FDA-Public Use
  Company Number: US-ABBVIE-4211108

PATIENT
  Age: 24 Year
  Sex: Male

DRUGS (1)
  1. HUMIRA [Suspect]
     Active Substance: ADALIMUMAB
     Indication: Crohn^s disease
     Dosage: STRENGTH 40 MG
     Route: 058
     Dates: start: 20210930

REACTIONS (9)
  - Flatulence [Unknown]
  - Arthralgia [Unknown]
  - Abdominal pain [Unknown]
  - Gastrointestinal sounds abnormal [Unknown]
  - Crohn^s disease [Unknown]
  - Loss of personal independence in daily activities [Unknown]
  - Haematochezia [Unknown]
  - Asthenia [Unknown]
  - Constipation [Unknown]

NARRATIVE: CASE EVENT DATE: 20221001
